FAERS Safety Report 8056408-9 (Version None)
Quarter: 2012Q1

REPORT INFORMATION
  Report Type: 
  Country: None (occurrence: None)
  Receive Date: 20120119
  Receipt Date: 20120112
  Transmission Date: 20120608
  Serious: Yes (Hospitalization)
  Sender: FDA-Public Use
  Company Number: US-US-EMD SERONO, INC.-7106761

PATIENT
  Sex: Female
  Weight: 64 kg

DRUGS (2)
  1. ACETAMINOPHEN [Concomitant]
     Indication: PREMEDICATION
  2. REBIF [Suspect]
     Indication: PRODUCT USED FOR UNKNOWN INDICATION
     Route: 058
     Dates: start: 20050115

REACTIONS (6)
  - INJECTION SITE DISCOLOURATION [None]
  - ABASIA [None]
  - VIRAL INFECTION [None]
  - VOMITING [None]
  - CHILLS [None]
  - NAUSEA [None]
